APPROVED DRUG PRODUCT: MINOXIDIL EXTRA STRENGTH (FOR MEN)
Active Ingredient: MINOXIDIL
Strength: 5%
Dosage Form/Route: SOLUTION;TOPICAL
Application: A075839 | Product #001
Applicant: APOTEX INC
Approved: Oct 1, 2001 | RLD: No | RS: No | Type: DISCN